FAERS Safety Report 4397045-7 (Version None)
Quarter: 2004Q3

REPORT INFORMATION
  Report Type: 
  Country: None (occurrence: None)
  Receive Date: 20040708
  Receipt Date: 20040625
  Transmission Date: 20050211
  Serious: Yes (Hospitalization, Other)
  Sender: FDA-Public Use
  Company Number: 2004042883

PATIENT
  Age: 3 Year
  Sex: Male
  Weight: 14 kg

DRUGS (3)
  1. MECLIZINE [Suspect]
     Indication: VOMITING
     Dosage: 15 ML (5 ML, 3 IN 1 D), ORAL
     Route: 048
     Dates: start: 20040619, end: 20040621
  2. PARACETAMOL (PARACETAMOL) [Suspect]
     Indication: ILL-DEFINED DISORDER
     Dosage: ORAL
     Route: 048
     Dates: start: 20040619, end: 20040621
  3. AMIKACIN SULFATE [Suspect]
     Indication: ILL-DEFINED DISORDER
     Dosage: ORAL
     Route: 048
     Dates: start: 20040619, end: 20040621

REACTIONS (4)
  - DRUG TOXICITY [None]
  - HALLUCINATION [None]
  - PYREXIA [None]
  - TREMOR [None]
